FAERS Safety Report 23761485 (Version 1)
Quarter: 2024Q2

REPORT INFORMATION
  Report Type: Other
  Country: CN (occurrence: CN)
  Receive Date: 20240419
  Receipt Date: 20240419
  Transmission Date: 20240715
  Serious: Yes (Death, Hospitalization, Other)
  Sender: FDA-Public Use
  Company Number: CN-Nuvo Pharmaceuticals Inc-2155770

PATIENT
  Age: 18 Year
  Sex: Female

DRUGS (2)
  1. DIAZEPAM [Suspect]
     Active Substance: DIAZEPAM
     Indication: Product used for unknown indication
     Route: 048
  2. PROPAFENONE [Suspect]
     Active Substance: PROPAFENONE
     Route: 048

REACTIONS (18)
  - Syncope [Fatal]
  - Overdose [Unknown]
  - Blood pressure decreased [Fatal]
  - Toxicity to various agents [Fatal]
  - Haemodynamic instability [Fatal]
  - Coma [Fatal]
  - Respiratory alkalosis [Fatal]
  - Metabolic acidosis [Fatal]
  - Left ventricular dysfunction [Fatal]
  - Atrioventricular block first degree [Fatal]
  - Bundle branch block right [Fatal]
  - Ejection fraction decreased [Fatal]
  - Electrocardiogram P wave abnormal [Fatal]
  - Vomiting [Fatal]
  - Seizure [Fatal]
  - Cardiac arrest [Fatal]
  - Electrocardiogram QT prolonged [Fatal]
  - Electrocardiogram QRS complex prolonged [Fatal]
